FAERS Safety Report 17681130 (Version 2)
Quarter: 2020Q4

REPORT INFORMATION
  Report Type: Spontaneous
  Country: US (occurrence: US)
  Receive Date: 20200417
  Receipt Date: 20201117
  Transmission Date: 20210113
  Serious: Yes (Hospitalization, Other)
  Sender: FDA-Public Use
  Company Number: US-ASTRAZENECA-2020SE50856

PATIENT
  Age: 10842 Day
  Sex: Female

DRUGS (38)
  1. PREVACID 24 HR [Suspect]
     Active Substance: LANSOPRAZOLE
     Indication: GASTROOESOPHAGEAL REFLUX DISEASE
     Route: 065
     Dates: start: 201203, end: 201612
  2. ATORVASTATIN [Concomitant]
     Active Substance: ATORVASTATIN
  3. PYRIDOXINE [Concomitant]
     Active Substance: PYRIDOXINE
  4. VANCOMYCIN [Concomitant]
     Active Substance: VANCOMYCIN
  5. NEXIUM 24HR [Suspect]
     Active Substance: ESOMEPRAZOLE MAGNESIUM
     Indication: GASTROOESOPHAGEAL REFLUX DISEASE
     Route: 048
     Dates: start: 201203, end: 201612
  6. INSULIN GLARGINE [Concomitant]
     Active Substance: INSULIN GLARGINE
  7. LEVEMIR [Concomitant]
     Active Substance: INSULIN DETEMIR
  8. SMZ-TMP [Concomitant]
     Active Substance: SULFAMETHOXAZOLE\TRIMETHOPRIM
  9. CATAPRES [Concomitant]
     Active Substance: CLONIDINE HYDROCHLORIDE
  10. NOVOLIN NOS [Concomitant]
     Active Substance: INSULIN HUMAN
  11. PREVACID 24 HR [Suspect]
     Active Substance: LANSOPRAZOLE
     Indication: GASTROOESOPHAGEAL REFLUX DISEASE
     Route: 065
     Dates: start: 20120301, end: 20161231
  12. WARFARIN [Concomitant]
     Active Substance: WARFARIN
  13. ZOFRAN [Concomitant]
     Active Substance: ONDANSETRON HYDROCHLORIDE
  14. CIPROFLOXACIN. [Concomitant]
     Active Substance: CIPROFLOXACIN
  15. NORVASC [Concomitant]
     Active Substance: AMLODIPINE BESYLATE
  16. FLAGYL [Concomitant]
     Active Substance: METRONIDAZOLE\METRONIDAZOLE HYDROCHLORIDE
  17. SALINE [Concomitant]
     Active Substance: SODIUM CHLORIDE
  18. OXYCODONE/ACETAMINOPHEN [Concomitant]
     Active Substance: ACETAMINOPHEN\OXYCODONE HYDROCHLORIDE
  19. ASPIRIN. [Concomitant]
     Active Substance: ASPIRIN
  20. FOLIC ACID. [Concomitant]
     Active Substance: FOLIC ACID
  21. INSULIN LISPRO [Concomitant]
     Active Substance: INSULIN LISPRO
  22. MORPHINE [Concomitant]
     Active Substance: MORPHINE
  23. CYANOCOBALAMIN. [Concomitant]
     Active Substance: CYANOCOBALAMIN
  24. NICOTINE. [Concomitant]
     Active Substance: NICOTINE
  25. DILAUDID [Concomitant]
     Active Substance: HYDROMORPHONE HYDROCHLORIDE
  26. ENALAPRIL [Concomitant]
     Active Substance: ENALAPRIL
  27. MUPIROCIN. [Concomitant]
     Active Substance: MUPIROCIN
  28. ZOLPIDEM [Concomitant]
     Active Substance: ZOLPIDEM TARTRATE
  29. NEXIUM 24HR [Suspect]
     Active Substance: ESOMEPRAZOLE MAGNESIUM
     Indication: GASTROOESOPHAGEAL REFLUX DISEASE
     Route: 048
     Dates: start: 20120301, end: 20161231
  30. LISINOPRIL. [Concomitant]
     Active Substance: LISINOPRIL
  31. METOPROLOL. [Concomitant]
     Active Substance: METOPROLOL
  32. CALCIUM ACETATE. [Concomitant]
     Active Substance: CALCIUM ACETATE
  33. HYDROMORPHONE [Concomitant]
     Active Substance: HYDROMORPHONE
  34. NORCO [Concomitant]
     Active Substance: ACETAMINOPHEN\HYDROCODONE BITARTRATE
  35. METRONIDAZOLE. [Concomitant]
     Active Substance: METRONIDAZOLE
  36. NIFEDIPINE. [Concomitant]
     Active Substance: NIFEDIPINE
  37. ALPRAZOLAM. [Concomitant]
     Active Substance: ALPRAZOLAM
  38. CARVEDILOL. [Concomitant]
     Active Substance: CARVEDILOL

REACTIONS (6)
  - Acute kidney injury [Unknown]
  - Chronic kidney disease [Unknown]
  - Renal failure [Unknown]
  - End stage renal disease [Not Recovered/Not Resolved]
  - Renal tubular necrosis [Unknown]
  - Nephrogenic anaemia [Unknown]

NARRATIVE: CASE EVENT DATE: 20120707
